FAERS Safety Report 14844608 (Version 1)
Quarter: 2018Q2

REPORT INFORMATION
  Report Type: Spontaneous
  Country: US (occurrence: US)
  Receive Date: 20180503
  Receipt Date: 20180503
  Transmission Date: 20180711
  Serious: No
  Sender: FDA-Public Use
  Company Number: US-GLAXOSMITHKLINE-US2018GSK077073

PATIENT
  Sex: Male

DRUGS (2)
  1. TOPIRAMATE. [Concomitant]
     Active Substance: TOPIRAMATE
     Indication: PRODUCT USED FOR UNKNOWN INDICATION
  2. SUMATRIPTAN SUCCINATE SOLUTION FOR INJECTION IN PRE-FILLED PEN [Suspect]
     Active Substance: SUMATRIPTAN SUCCINATE
     Indication: HEADACHE
     Dosage: 6 MG, PRN

REACTIONS (2)
  - Tremor [Unknown]
  - Drug dose omission [Unknown]
